FAERS Safety Report 19991370 (Version 1)
Quarter: 2021Q4

REPORT INFORMATION
  Report Type: Spontaneous
  Country: US (occurrence: US)
  Receive Date: 20211025
  Receipt Date: 20211025
  Transmission Date: 20220303
  Serious: Yes (Other)
  Sender: FDA-Public Use
  Company Number: US-PFIZER INC-202101361852

PATIENT
  Age: 76 Year
  Sex: Female

DRUGS (2)
  1. IBRANCE [Suspect]
     Active Substance: PALBOCICLIB
     Dosage: UNK
     Dates: start: 20170112, end: 20210506
  2. FEMARA [Concomitant]
     Active Substance: LETROZOLE
     Dosage: UNK
     Dates: start: 20170112, end: 20210506

REACTIONS (5)
  - Neutropenia [Unknown]
  - Fatigue [Unknown]
  - Alopecia [Unknown]
  - Mouth ulceration [Unknown]
  - Arthralgia [Unknown]

NARRATIVE: CASE EVENT DATE: 20170208
